FAERS Safety Report 8364991-9 (Version None)
Quarter: 2012Q2

REPORT INFORMATION
  Report Type: 
  Country: None (occurrence: None)
  Receive Date: 20120516
  Receipt Date: 20120508
  Transmission Date: 20120825
  Serious: Yes (Other)
  Sender: FDA-Public Use
  Company Number: US-GLAXOSMITHKLINE-A0974396A

PATIENT
  Age: 47 Year
  Sex: Female

DRUGS (5)
  1. LASIX [Concomitant]
     Route: 048
  2. TRACLEER [Concomitant]
     Dosage: 125MG TWICE PER DAY
     Route: 048
  3. REVATIO [Concomitant]
     Route: 048
  4. BYSTOLIC [Concomitant]
     Route: 048
  5. FLOLAN [Suspect]
     Indication: PRODUCT USED FOR UNKNOWN INDICATION
     Dosage: 48NGKM UNKNOWN
     Route: 065

REACTIONS (3)
  - DISEASE PROGRESSION [None]
  - MALAISE [None]
  - ASCITES [None]
